FAERS Safety Report 18962753 (Version 1)
Quarter: 2021Q1

REPORT INFORMATION
  Report Type: Spontaneous
  Country: US (occurrence: US)
  Receive Date: 20210303
  Receipt Date: 20210303
  Transmission Date: 20210420
  Serious: Yes (Life-Threatening, Disabling)
  Sender: FDA-Public Use
  Company Number: None

PATIENT
  Age: 21 Year
  Sex: Male
  Weight: 76.5 kg

DRUGS (11)
  1. ISOTRETINOIN. [Suspect]
     Active Substance: ISOTRETINOIN
  2. B6 [Concomitant]
     Active Substance: PYRIDOXINE HYDROCHLORIDE
  3. IRON SUPPLEMENT [Concomitant]
     Active Substance: IRON
  4. PREDNISONE. [Suspect]
     Active Substance: PREDNISONE
  5. FLOVENT [Concomitant]
     Active Substance: FLUTICASONE PROPIONATE
  6. PEPCIDE [Concomitant]
  7. RHINOCORT [Concomitant]
     Active Substance: BUDESONIDE
  8. VITAMIN D [Concomitant]
     Active Substance: VITAMIN D NOS
  9. MONTELUKAST [Suspect]
     Active Substance: MONTELUKAST SODIUM
  10. ISOTRETINOIN. [Concomitant]
     Active Substance: ISOTRETINOIN
  11. ALLEGRA [Concomitant]
     Active Substance: FEXOFENADINE HYDROCHLORIDE

REACTIONS (8)
  - Gastrointestinal haemorrhage [None]
  - Suicidal ideation [None]
  - Colitis ulcerative [None]
  - Irritable bowel syndrome [None]
  - Food allergy [None]
  - Self-injurious ideation [None]
  - Acne cystic [None]
  - Contraindicated product administered [None]

NARRATIVE: CASE EVENT DATE: 20200712
